FAERS Safety Report 8327085 (Version 2)
Quarter: 2014Q4

REPORT INFORMATION
  Report Type: Report from Study
  Country: DK (occurrence: DK)
  Receive Date: 20120109
  Receipt Date: 20141229
  Transmission Date: 20150529
  Serious: Yes (Hospitalization)
  Sender: FDA-Public Use
  Company Number: DK-ROCHE-1027213

PATIENT
  Age: 40 Year
  Sex: Male

DRUGS (9)
  1. INTERLEUKIN-2 [Suspect]
     Active Substance: ALDESLEUKIN
     Indication: METASTATIC RENAL CELL CARCINOMA
     Dosage: 5 IE/DAY
     Route: 042
     Dates: start: 20111227, end: 20111231
  2. INTERLEUKIN-2 [Suspect]
     Active Substance: ALDESLEUKIN
     Dosage: 5 IE PER DAY
     Route: 058
     Dates: start: 20111227, end: 20111231
  3. FRAGMIN [Concomitant]
     Active Substance: DALTEPARIN SODIUM
     Route: 058
     Dates: start: 20111204
  4. BEVACIZUMAB [Suspect]
     Active Substance: BEVACIZUMAB
     Indication: METASTATIC RENAL CELL CARCINOMA
     Route: 042
     Dates: start: 20111227, end: 20111227
  5. INTERFERON ALFA-2A [Suspect]
     Active Substance: INTERFERON ALFA-2A
     Indication: METASTATIC RENAL CELL CARCINOMA
     Dosage: 3IE/DAY
     Route: 058
     Dates: start: 20111227, end: 20111231
  6. INTERFERON ALFA-2A [Suspect]
     Active Substance: INTERFERON ALFA-2A
     Dosage: 3 IE/DAY
     Route: 058
     Dates: start: 20111227, end: 20111231
  7. PANTOPRAZOLE [Concomitant]
     Active Substance: PANTOPRAZOLE SODIUM
     Route: 048
     Dates: start: 20111204
  8. BEVACIZUMAB [Suspect]
     Active Substance: BEVACIZUMAB
     Route: 042
     Dates: start: 20111227, end: 20111227
  9. EMPERAL [Concomitant]
     Active Substance: METOCLOPRAMIDE HYDROCHLORIDE
     Route: 048
     Dates: start: 20111129

REACTIONS (2)
  - Dehydration [Recovered/Resolved]
  - Nausea [Recovered/Resolved]

NARRATIVE: CASE EVENT DATE: 20111230
